FAERS Safety Report 25716876 (Version 1)
Quarter: 2025Q3

REPORT INFORMATION
  Report Type: Spontaneous
  Country: US (occurrence: None)
  Receive Date: 20250821
  Receipt Date: 20250821
  Transmission Date: 20251020
  Serious: Yes (Other)
  Sender: FDA-CTU
  Company Number: None

PATIENT
  Age: 53 Year
  Sex: Male
  Weight: 115.21 kg

DRUGS (1)
  1. TRINTELLIX [Suspect]
     Active Substance: VORTIOXETINE HYDROBROMIDE
     Indication: Major depression
     Dosage: FREQUENCY : DAILY;?
     Route: 048
     Dates: start: 20250701, end: 20250820

REACTIONS (2)
  - Breast swelling [None]
  - Breast pain [None]

NARRATIVE: CASE EVENT DATE: 20250820
